FAERS Safety Report 21146732 (Version 1)
Quarter: 2022Q3

REPORT INFORMATION
  Report Type: Spontaneous
  Country: US (occurrence: None)
  Receive Date: 20220728
  Receipt Date: 20220728
  Transmission Date: 20221027
  Serious: Yes (Other)
  Sender: FDA-Public Use
  Company Number: None

PATIENT
  Age: 69 Year
  Sex: Male

DRUGS (1)
  1. METHYLPREDNISOLONE [Suspect]
     Active Substance: METHYLPREDNISOLONE
     Indication: Osteoarthritis
     Dosage: FREQUENCY : ONCE;?OTHER ROUTE : OTHER;?
     Route: 050
     Dates: start: 20220303, end: 20220303

REACTIONS (3)
  - Fungal infection [None]
  - Debridement [None]
  - Aspiration joint [None]

NARRATIVE: CASE EVENT DATE: 20220303
